FAERS Safety Report 7708488-5 (Version None)
Quarter: 2011Q3

REPORT INFORMATION
  Report Type: 
  Country: None (occurrence: None)
  Receive Date: 20110825
  Receipt Date: 20110812
  Transmission Date: 20111222
  Serious: Yes (Other)
  Sender: FDA-Public Use
  Company Number: US-RANBAXY-2011US-46896

PATIENT

DRUGS (1)
  1. DONEPEZIL HYDROCHLORIDE [Suspect]
     Indication: DEMENTIA
     Dosage: 10 MG, QD
     Route: 048
     Dates: start: 20110519

REACTIONS (9)
  - ABNORMAL BEHAVIOUR [None]
  - DIARRHOEA [None]
  - POLLAKIURIA [None]
  - ABNORMAL DREAMS [None]
  - FAECES DISCOLOURED [None]
  - CONFUSIONAL STATE [None]
  - DIZZINESS [None]
  - FATIGUE [None]
  - PRURITUS [None]
